FAERS Safety Report 11917724 (Version 1)
Quarter: 2016Q1

REPORT INFORMATION
  Report Type: Spontaneous
  Country: BR (occurrence: BR)
  Receive Date: 20160114
  Receipt Date: 20160114
  Transmission Date: 20160526
  Serious: Yes (Other)
  Sender: FDA-Public Use
  Company Number: BR-ABBVIE-15P-020-1517936-00

PATIENT
  Sex: Female

DRUGS (4)
  1. LEVOMEPROMAZINE [Concomitant]
     Active Substance: LEVOMEPROMAZINE
     Indication: PRODUCT USED FOR UNKNOWN INDICATION
  2. DEPAKENE [Suspect]
     Active Substance: VALPROIC ACID
     Indication: EPILEPSY
     Dosage: DAILY DOSE: 5 CAPSULES (2 CAPSULES IN THE MORNING AND 3 CAPSULES AT NIGHT)
     Route: 048
     Dates: start: 20151127, end: 20151129
  3. GARDENAL [Interacting]
     Active Substance: PHENOBARBITAL
     Indication: EPILEPSY
     Route: 065
  4. DIAZEPAM. [Concomitant]
     Active Substance: DIAZEPAM
     Indication: PRODUCT USED FOR UNKNOWN INDICATION

REACTIONS (6)
  - Seizure [Recovered/Resolved]
  - Vital functions abnormal [Recovered/Resolved]
  - Blood pressure decreased [Recovered/Resolved]
  - Drug interaction [Unknown]
  - Hypoaesthesia [Recovered/Resolved]
  - Hypoaesthesia oral [Recovered/Resolved]

NARRATIVE: CASE EVENT DATE: 2015
